FAERS Safety Report 18844323 (Version 1)
Quarter: 2021Q1

REPORT INFORMATION
  Report Type: Spontaneous
  Country: JP (occurrence: JP)
  Receive Date: 20210203
  Receipt Date: 20210203
  Transmission Date: 20210419
  Serious: Yes (Other)
  Sender: FDA-Public Use
  Company Number: JP-EXELIXIS-CABO-20032235

PATIENT
  Age: 69 Year
  Sex: Male
  Weight: 66 kg

DRUGS (9)
  1. THYRADIN S [Concomitant]
     Active Substance: LEVOTHYROXINE SODIUM
     Dosage: 100 MICROGRAM, QD
     Route: 048
     Dates: start: 20190805, end: 20191208
  2. THYRADIN S [Concomitant]
     Active Substance: LEVOTHYROXINE SODIUM
     Dosage: 125 MICROGRAM, QD
     Route: 048
     Dates: start: 20191209
  3. CABOMETYX [Suspect]
     Active Substance: CABOZANTINIB S-MALATE
     Indication: RENAL CELL CARCINOMA
     Dosage: 40 MG, QD
     Route: 048
     Dates: start: 20200706, end: 20200820
  4. MYSER [Concomitant]
     Indication: PALMAR-PLANTAR ERYTHRODYSAESTHESIA SYNDROME
     Dosage: UNK
     Route: 065
     Dates: start: 20200706
  5. RINDERON [Concomitant]
     Indication: PALMAR-PLANTAR ERYTHRODYSAESTHESIA SYNDROME
     Dosage: UNK
     Route: 065
     Dates: start: 20200803
  6. MIYA?BM [Concomitant]
     Active Substance: CLOSTRIDIUM BUTYRICUM SPORES STRAIN M-55
     Indication: DIARRHOEA
     Dosage: 20 MILLIGRAM, TID
     Route: 048
     Dates: start: 20200706
  7. BESOFTEN [Concomitant]
     Active Substance: PENTOSAN POLYSULFATE SODIUM
     Indication: PALMAR-PLANTAR ERYTHRODYSAESTHESIA SYNDROME
     Dosage: UNK
     Route: 065
     Dates: start: 20200706
  8. THYRADIN S [Concomitant]
     Active Substance: LEVOTHYROXINE SODIUM
     Indication: HYPOTHYROIDISM
     Dosage: UNK
     Route: 048
  9. DENOSUMAB [Concomitant]
     Active Substance: DENOSUMAB
     Indication: METASTASES TO BONE
     Dosage: UNK
     Dates: start: 2018

REACTIONS (12)
  - Osteonecrosis of jaw [Not Recovered/Not Resolved]
  - Hypertension [Unknown]
  - Blood creatine phosphokinase increased [Unknown]
  - Blood thyroid stimulating hormone increased [Unknown]
  - Protein urine [Unknown]
  - Chromaturia [Unknown]
  - Neuropathy peripheral [Unknown]
  - Rash [Unknown]
  - Platelet count decreased [Unknown]
  - Hepatic function abnormal [Unknown]
  - Taste disorder [Unknown]
  - Palmar-plantar erythrodysaesthesia syndrome [Unknown]

NARRATIVE: CASE EVENT DATE: 20200720
